FAERS Safety Report 6832042-0 (Version None)
Quarter: 2010Q3

REPORT INFORMATION
  Report Type: 
  Country: None (occurrence: None)
  Receive Date: 20100712
  Receipt Date: 20100705
  Transmission Date: 20110219
  Serious: Yes (Other)
  Sender: FDA-Public Use
  Company Number: GB-ROCHE-713433

PATIENT
  Age: 50 Year
  Sex: Female

DRUGS (1)
  1. PEGINTERFERON ALFA-2A [Suspect]
     Indication: HEPATITIS C
     Route: 065
     Dates: start: 20100501

REACTIONS (3)
  - COUGH [None]
  - PHOTOPSIA [None]
  - VISION BLURRED [None]
